FAERS Safety Report 9717091 (Version 2)
Quarter: 2013Q4

REPORT INFORMATION
  Report Type: Spontaneous
  Country: US (occurrence: US)
  Receive Date: 20131127
  Receipt Date: 20131127
  Transmission Date: 20140711
  Serious: No
  Sender: FDA-Public Use
  Company Number: US-GILEAD-2009-0020638

PATIENT
  Sex: Female
  Weight: 43.09 kg

DRUGS (11)
  1. LETAIRIS [Suspect]
     Indication: PULMONARY ARTERIAL HYPERTENSION
     Route: 048
     Dates: start: 20080710
  2. REVATIO [Concomitant]
  3. ASPIRIN [Concomitant]
  4. OXYGEN [Concomitant]
  5. PREDNISONE [Concomitant]
  6. NARVASC [Concomitant]
  7. LOZOL [Concomitant]
  8. PRILOSEC [Concomitant]
  9. SYNTHROID [Concomitant]
  10. MOTRIN [Concomitant]
  11. VITAMIN D [Concomitant]

REACTIONS (6)
  - Gastrointestinal ulcer [Unknown]
  - Abdominal discomfort [Unknown]
  - Oedema [Unknown]
  - Weight increased [Unknown]
  - Rhinorrhoea [Unknown]
  - Hot flush [Unknown]
